FAERS Safety Report 6693045-2 (Version None)
Quarter: 2010Q2

REPORT INFORMATION
  Report Type: 
  Country: None (occurrence: None)
  Receive Date: 20100422
  Receipt Date: 20100408
  Transmission Date: 20101027
  Serious: Yes (Hospitalization)
  Sender: FDA-Public Use
  Company Number: DE-MYLANLABS-2010S1006214

PATIENT
  Age: 81 Year
  Sex: Male

DRUGS (10)
  1. ENALAPRIL MALEATE [Suspect]
     Indication: HYPERTENSION
     Route: 048
     Dates: end: 20090203
  2. FURORESE [Suspect]
     Indication: RENAL IMPAIRMENT
     Route: 048
     Dates: start: 20081001
  3. SIMVAHEXAL [Suspect]
     Indication: CORONARY ARTERY DISEASE
     Route: 048
     Dates: start: 20070901, end: 20090203
  4. XIPAMIDE [Suspect]
     Indication: HYPERTENSION
     Route: 048
     Dates: start: 20081001
  5. INSULIN ACTRAPHANE HUMAN [Concomitant]
     Indication: TYPE 2 DIABETES MELLITUS
     Dosage: 20-0-14 IU
     Route: 058
     Dates: start: 20050101
  6. ACETYLSALICYLIC ACID [Concomitant]
     Indication: ACUTE MYOCARDIAL INFARCTION
     Route: 048
     Dates: start: 20070901
  7. ESCOR [Concomitant]
     Indication: HYPERTENSION
     Route: 048
     Dates: start: 20070901
  8. OMEPRAZOLE [Concomitant]
     Indication: PROPHYLAXIS AGAINST GASTROINTESTINAL ULCER
     Route: 048
     Dates: start: 20070901
  9. BISOPROLOL [Concomitant]
     Indication: CORONARY ARTERY DISEASE
     Route: 048
     Dates: start: 20070901
  10. FERRO SANOL /00023503/ [Concomitant]
     Indication: IRON DEFICIENCY ANAEMIA
     Route: 048
     Dates: start: 20081001

REACTIONS (2)
  - RENAL FAILURE ACUTE [None]
  - RHABDOMYOLYSIS [None]
